FAERS Safety Report 8052948 (Version 3)
Quarter: 2014Q2

REPORT INFORMATION
  Report Type: Spontaneous
  Country: US (occurrence: US)
  Receive Date: 20110725
  Receipt Date: 20140414
  Transmission Date: 20141212
  Serious: Yes (Other)
  Sender: FDA-Public Use
  Company Number: US-SANOFI-AVENTIS-2011SA046917

PATIENT
  Age: 45 Year
  Sex: Male

DRUGS (7)
  1. ZOLPIDEM [Suspect]
     Route: 048
  2. CITALOPRAM [Suspect]
     Route: 065
  3. DIPHENHYDRAMINE [Suspect]
     Route: 065
  4. ACETONE [Suspect]
     Route: 065
  5. CAFFEINE [Suspect]
     Route: 065
  6. LEXAPRO [Suspect]
     Indication: DEPRESSION
     Route: 065
     Dates: start: 200903
  7. XANAX [Suspect]
     Indication: DEPRESSION
     Route: 065
     Dates: start: 200903

REACTIONS (4)
  - Homicide [Unknown]
  - Anger [Unknown]
  - Amnesia [Unknown]
  - Agitation [Unknown]
